FAERS Safety Report 4953050-0 (Version None)
Quarter: 2006Q1

REPORT INFORMATION
  Report Type: 
  Country: None (occurrence: None)
  Receive Date: 20060324
  Receipt Date: 20060216
  Transmission Date: 20060701
  Serious: Yes (Hospitalization)
  Sender: FDA-Public Use
  Company Number: US-AMGEN-US169425

PATIENT
  Sex: Male

DRUGS (2)
  1. EPOGEN [Suspect]
     Indication: DIALYSIS
     Route: 042
     Dates: end: 20051201
  2. QUININE SULFATE [Concomitant]
     Dates: end: 20051201

REACTIONS (4)
  - ANAEMIA MACROCYTIC [None]
  - BONE MARROW DISORDER [None]
  - DRUG TOXICITY [None]
  - THERAPEUTIC RESPONSE DECREASED [None]
